FAERS Safety Report 17810409 (Version 1)
Quarter: 2020Q2

REPORT INFORMATION
  Report Type: Spontaneous
  Country: CA (occurrence: CA)
  Receive Date: 20200521
  Receipt Date: 20200521
  Transmission Date: 20200714
  Serious: Yes (Other)
  Sender: FDA-Public Use
  Company Number: CA-DRREDDYS-USA/CAN/20/0123159

PATIENT
  Age: 57 Month
  Sex: Male
  Weight: 83 kg

DRUGS (1)
  1. ATORVASTATIN [Suspect]
     Active Substance: ATORVASTATIN
     Indication: PRODUCT USED FOR UNKNOWN INDICATION
     Route: 048

REACTIONS (7)
  - Dizziness [Unknown]
  - Myalgia [Unknown]
  - Urine odour abnormal [Unknown]
  - Chromaturia [Unknown]
  - Product use issue [Unknown]
  - Off label use [Unknown]
  - Headache [Unknown]
